FAERS Safety Report 15694301 (Version 1)
Quarter: 2018Q4

REPORT INFORMATION
  Report Type: Other
  Country: ES (occurrence: ES)
  Receive Date: 20181206
  Receipt Date: 20181206
  Transmission Date: 20190205
  Serious: Yes (Life-Threatening, Hospitalization, Other)
  Sender: FDA-Public Use
  Company Number: ES-APOTEX-2018AP026069

PATIENT
  Age: 18 Year
  Sex: Female

DRUGS (4)
  1. ESCITALOPRAM [Suspect]
     Active Substance: ESCITALOPRAM OXALATE
     Indication: SUICIDE ATTEMPT
     Dosage: UNK UNK, QD
     Route: 048
     Dates: start: 20171201, end: 20171201
  2. IBUPROFEN. [Suspect]
     Active Substance: IBUPROFEN
     Indication: SUICIDE ATTEMPT
     Dosage: 2800 MG, IN TOTAL (400 MG X 7 CPS)
     Route: 048
     Dates: start: 20171201, end: 20171201
  3. PARACETAMOL [Suspect]
     Active Substance: ACETAMINOPHEN
     Indication: SUICIDE ATTEMPT
     Dosage: 12 G, IN TOTAL
     Route: 048
     Dates: start: 20171201, end: 20171201
  4. EXFORGE [Suspect]
     Active Substance: AMLODIPINE BESYLATE\VALSARTAN
     Indication: SUICIDE ATTEMPT
     Dosage: 5 DF, IN TOTAL
     Route: 048
     Dates: start: 20171201, end: 20171201

REACTIONS (2)
  - Hepatitis [Recovered/Resolved]
  - Hypocoagulable state [Recovered/Resolved]

NARRATIVE: CASE EVENT DATE: 20171202
